FAERS Safety Report 7300895-8 (Version None)
Quarter: 2011Q1

REPORT INFORMATION
  Report Type: 
  Country: None (occurrence: None)
  Receive Date: 20110218
  Receipt Date: 20100823
  Transmission Date: 20110831
  Serious: Yes (Hospitalization, Other)
  Sender: FDA-Public Use
  Company Number: US-RANBAXY-2010US-33841

PATIENT

DRUGS (1)
  1. VERAPAMIL TABLETS BP 80MG [Suspect]
     Dosage: 50 TABLETS OF 80 MG
     Route: 065

REACTIONS (2)
  - INTENTIONAL OVERDOSE [None]
  - TOXICITY TO VARIOUS AGENTS [None]
